FAERS Safety Report 22008659 (Version 1)
Quarter: 2023Q1

REPORT INFORMATION
  Report Type: Spontaneous
  Country: CA (occurrence: CA)
  Receive Date: 20230219
  Receipt Date: 20230219
  Transmission Date: 20230417
  Serious: Yes (Other)
  Sender: FDA-Public Use
  Company Number: CA-JNJFOC-20230236020

PATIENT
  Age: 29 Year
  Sex: Male
  Weight: 62 kg

DRUGS (11)
  1. REMICADE [Suspect]
     Active Substance: INFLIXIMAB
     Indication: Crohn^s disease
     Route: 041
  2. INFLIXIMAB [Suspect]
     Active Substance: INFLIXIMAB
     Indication: Crohn^s disease
     Route: 042
  3. INFLIXIMAB [Suspect]
     Active Substance: INFLIXIMAB
     Route: 042
  4. INFLIXIMAB [Suspect]
     Active Substance: INFLIXIMAB
     Route: 065
  5. ATIVAN [Concomitant]
     Active Substance: LORAZEPAM
  6. BISOPROLOL [Concomitant]
     Active Substance: BISOPROLOL
  7. COGENTIN [Concomitant]
     Active Substance: BENZTROPINE MESYLATE
  8. CYMBALTA [Concomitant]
     Active Substance: DULOXETINE HYDROCHLORIDE
  9. DILAUDID [Concomitant]
     Active Substance: HYDROMORPHONE HYDROCHLORIDE
  10. HALDOL [Concomitant]
     Active Substance: HALOPERIDOL
  11. HUMIRA [Concomitant]
     Active Substance: ADALIMUMAB
     Route: 058

REACTIONS (11)
  - Catatonia [Not Recovered/Not Resolved]
  - Anger [Not Recovered/Not Resolved]
  - Communication disorder [Not Recovered/Not Resolved]
  - Decreased appetite [Not Recovered/Not Resolved]
  - Frustration tolerance decreased [Not Recovered/Not Resolved]
  - General physical health deterioration [Not Recovered/Not Resolved]
  - Incoherent [Not Recovered/Not Resolved]
  - Off label use [Not Recovered/Not Resolved]
  - Soliloquy [Not Recovered/Not Resolved]
  - Weight decreased [Not Recovered/Not Resolved]
  - Nausea [Not Recovered/Not Resolved]
